FAERS Safety Report 13391694 (Version 1)
Quarter: 2017Q1

REPORT INFORMATION
  Report Type: Spontaneous
  Country: US (occurrence: US)
  Receive Date: 20170331
  Receipt Date: 20170331
  Transmission Date: 20170429
  Serious: Yes (Other)
  Sender: FDA-Public Use
  Company Number: US-ASTELLAS-2017US005147

PATIENT
  Age: 75 Year
  Sex: Female

DRUGS (1)
  1. LEXISCAN [Suspect]
     Active Substance: REGADENOSON
     Indication: SCAN MYOCARDIAL PERFUSION
     Dosage: 0.4 MG/5 ML, ADMINISTERED IN 10 SECONDS
     Route: 065
     Dates: start: 20170207, end: 20170207

REACTIONS (3)
  - Heart rate decreased [Recovering/Resolving]
  - Blood pressure decreased [Recovering/Resolving]
  - Presyncope [Recovered/Resolved]

NARRATIVE: CASE EVENT DATE: 20170207
